FAERS Safety Report 8313774-4 (Version None)
Quarter: 2012Q2

REPORT INFORMATION
  Report Type: 
  Country: None (occurrence: None)
  Receive Date: 20120426
  Receipt Date: 20120420
  Transmission Date: 20120825
  Serious: Yes (Other)
  Sender: FDA-Public Use
  Company Number: US-ASTRAZENECA-2008UW03838

PATIENT
  Age: 64 Year
  Sex: Female
  Weight: 72.6 kg

DRUGS (6)
  1. VITAMIN TAB [Concomitant]
  2. VITAMIN D [Concomitant]
  3. CO Q-10 [Concomitant]
  4. MVI MAGNESIUM [Concomitant]
  5. CALCIUM [Concomitant]
  6. ARIMIDEX [Suspect]
     Indication: BREAST CANCER
     Route: 048
     Dates: start: 20070301

REACTIONS (16)
  - FEELING HOT [None]
  - BONE PAIN [None]
  - HOT FLUSH [None]
  - MYALGIA [None]
  - ORAL HERPES [None]
  - DIARRHOEA [None]
  - FATIGUE [None]
  - HEADACHE [None]
  - STRESS URINARY INCONTINENCE [None]
  - ARTHRALGIA [None]
  - TRANSIENT ISCHAEMIC ATTACK [None]
  - HYPERTENSION [None]
  - MICTURITION URGENCY [None]
  - LYMPHADENOPATHY [None]
  - DIZZINESS [None]
  - NAUSEA [None]
